FAERS Safety Report 15469863 (Version 2)
Quarter: 2018Q4

REPORT INFORMATION
  Report Type: Spontaneous
  Country: US (occurrence: US)
  Receive Date: 20181005
  Receipt Date: 20181008
  Transmission Date: 20190205
  Serious: No
  Sender: FDA-Public Use
  Company Number: US-BAYER-2018-186166

PATIENT
  Sex: Female

DRUGS (1)
  1. ALEVE [Suspect]
     Active Substance: NAPROXEN SODIUM
     Indication: PAIN
     Dosage: 4 TO 6 DF IN 24 HOURS
     Route: 048

REACTIONS (3)
  - Incorrect dosage administered [Unknown]
  - Drug ineffective [Unknown]
  - Limb discomfort [Unknown]
